FAERS Safety Report 12619579 (Version 1)
Quarter: 2016Q3

REPORT INFORMATION
  Report Type: Report from Study
  Country: CA (occurrence: CA)
  Receive Date: 20160803
  Receipt Date: 20160803
  Transmission Date: 20161109
  Serious: Yes (Hospitalization, Other)
  Sender: FDA-Public Use
  Company Number: CA-JNJFOC-20160526680

PATIENT
  Age: 45 Year
  Sex: Female
  Weight: 79 kg

DRUGS (1)
  1. REMICADE [Suspect]
     Active Substance: INFLIXIMAB
     Indication: CROHN^S DISEASE
     Route: 042
     Dates: start: 20140403

REACTIONS (12)
  - Off label use [Unknown]
  - Crohn^s disease [Unknown]
  - Vaginal infection [Unknown]
  - Product use issue [Unknown]
  - Wound secretion [Unknown]
  - Intestinal obstruction [Unknown]
  - Transfusion reaction [Unknown]
  - Oedema [Unknown]
  - Dermatitis [Unknown]
  - Post procedural complication [Unknown]
  - Cellulitis [Unknown]
  - Wound complication [Unknown]

NARRATIVE: CASE EVENT DATE: 20140403
